FAERS Safety Report 18101591 (Version 1)
Quarter: 2020Q3

REPORT INFORMATION
  Report Type: Spontaneous
  Country: GB (occurrence: GB)
  Receive Date: 20200801
  Receipt Date: 20200801
  Transmission Date: 20201103
  Serious: Yes (Hospitalization)
  Sender: FDA-Public Use
  Company Number: GB-CANTON LABORATORIES, LLC-2088036

PATIENT
  Age: 58 Year
  Sex: Female

DRUGS (6)
  1. NAPROSYN [Suspect]
     Active Substance: NAPROXEN
     Indication: OSTEOARTHRITIS
     Route: 048
     Dates: start: 20200626
  2. AMITRIPTYLINE HYDROCHLORIDE. [Concomitant]
     Active Substance: AMITRIPTYLINE HYDROCHLORIDE
     Route: 065
  3. PARACETAMOL [Concomitant]
     Active Substance: ACETAMINOPHEN
     Route: 065
  4. SODIUM CHLORIDE. [Concomitant]
     Active Substance: SODIUM CHLORIDE
     Route: 065
  5. NUTRITIONAL SUPPLEMENT [Concomitant]
     Active Substance: DIETARY SUPPLEMENT
     Route: 065
  6. RAMIPRIL. [Concomitant]
     Active Substance: RAMIPRIL
     Route: 065

REACTIONS (4)
  - Gastrointestinal haemorrhage [Recovering/Resolving]
  - Lethargy [Unknown]
  - Gastrointestinal ulcer [Recovering/Resolving]
  - Dizziness [Unknown]
